FAERS Safety Report 9450757 (Version 1)
Quarter: 2013Q3

REPORT INFORMATION
  Report Type: Spontaneous
  Country: US (occurrence: US)
  Receive Date: 20130809
  Receipt Date: 20130809
  Transmission Date: 20140515
  Serious: No
  Sender: FDA-Public Use
  Company Number: US-AMGEN-USASP2012070563

PATIENT
  Age: 58 Year
  Sex: Male

DRUGS (4)
  1. NEUPOGEN [Suspect]
     Indication: NEUTROPENIA
     Dosage: 300 MUG, PRN
     Dates: start: 20120928
  2. PEGASYS [Concomitant]
  3. RIBAVIRIN [Concomitant]
  4. VICTRELIS [Concomitant]

REACTIONS (2)
  - White blood cell count decreased [Unknown]
  - Fatigue [Unknown]
